FAERS Safety Report 6308149-3 (Version None)
Quarter: 2009Q3

REPORT INFORMATION
  Report Type: 
  Country: None (occurrence: None)
  Receive Date: 20090813
  Receipt Date: 20090804
  Transmission Date: 20100115
  Serious: Yes (Life-Threatening)
  Sender: FDA-Public Use
  Company Number: GB-AMGEN-US359033

PATIENT
  Age: 61 Year
  Sex: Female
  Weight: 75.6 kg

DRUGS (3)
  1. ENBREL [Suspect]
     Indication: RHEUMATOID ARTHRITIS
     Dosage: 50 MG FREQUENCY UNKNOWN
     Route: 058
     Dates: start: 20080220, end: 20090701
  2. LANSOPRAZOLE [Concomitant]
     Indication: ABDOMINAL DISCOMFORT
     Route: 048
     Dates: start: 20080915
  3. FERROUS SULFATE TAB [Concomitant]
     Indication: ANAEMIA
     Route: 048
     Dates: start: 20080915

REACTIONS (3)
  - COLON CANCER [None]
  - HAEMOGLOBIN DECREASED [None]
  - METASTASIS [None]
